FAERS Safety Report 5016016-0 (Version None)
Quarter: 2006Q2

REPORT INFORMATION
  Report Type: 
  Country: None (occurrence: None)
  Receive Date: 20060531
  Receipt Date: 20060531
  Transmission Date: 20061013
  Serious: Yes (Life-Threatening, Hospitalization, Other)
  Sender: FDA-Public Use
  Company Number: None

PATIENT
  Age: 32 Year
  Sex: Female
  Weight: 111.1313 kg

DRUGS (1)
  1. LAMISIL [Suspect]
     Indication: FUNGAL INFECTION
     Dosage: 1 1 PO
     Route: 048
     Dates: start: 20060512, end: 20060518

REACTIONS (4)
  - ANXIETY [None]
  - DRUG HYPERSENSITIVITY [None]
  - SKIN DISORDER [None]
  - STEVENS-JOHNSON SYNDROME [None]
